FAERS Safety Report 5035090-9 (Version None)
Quarter: 2006Q2

REPORT INFORMATION
  Report Type: 
  Country: None (occurrence: None)
  Receive Date: 20060627
  Receipt Date: 20050609
  Transmission Date: 20061013
  Serious: Yes (Hospitalization, Other)
  Sender: FDA-Public Use
  Company Number: FR-BRISTOL-MYERS SQUIBB COMPANY-12999975

PATIENT
  Age: 52 Year
  Sex: Male
  Weight: 69 kg

DRUGS (20)
  1. VIDEX EC [Suspect]
     Indication: HIV INFECTION
     Route: 048
     Dates: start: 20050523, end: 20050527
  2. ZERIT [Suspect]
     Indication: HIV INFECTION
     Dates: start: 20050323, end: 20050523
  3. AMIKLIN [Suspect]
     Indication: KERATITIS
     Route: 042
     Dates: start: 20050506
  4. EPIVIR [Suspect]
     Indication: HIV INFECTION
     Route: 048
     Dates: start: 20050323, end: 20050527
  5. KALETRA [Suspect]
     Indication: HIV INFECTION
     Route: 048
     Dates: start: 20050523, end: 20050527
  6. INVIRASE [Suspect]
     Indication: HIV INFECTION
     Dates: start: 20050323, end: 20050523
  7. PIRILENE [Suspect]
     Indication: TUBERCULOSIS
     Dates: start: 20050216, end: 20050412
  8. AMLOR [Concomitant]
  9. BISOPROLOL FUMARATE [Concomitant]
  10. COAPROVEL [Concomitant]
  11. LASILIX [Concomitant]
  12. KAYEXALATE [Concomitant]
  13. MOPRAL [Concomitant]
  14. RIMIFON [Concomitant]
     Indication: TUBERCULOSIS
     Dates: start: 20050216, end: 20050329
  15. RIFADIN [Concomitant]
     Indication: TUBERCULOSIS
     Dates: start: 20050216, end: 20050412
  16. DEXAMBUTOL [Concomitant]
     Indication: TUBERCULOSIS
     Dates: start: 20050216, end: 20050412
  17. ALLOPURINOL [Suspect]
     Indication: TUBERCULOSIS
     Dates: start: 20050314
  18. SOPROL [Concomitant]
     Indication: TUBERCULOSIS
     Dates: start: 20050314
  19. NORVIR [Concomitant]
     Indication: HIV INFECTION
     Dates: start: 20050323, end: 20050523
  20. CIFLOX [Concomitant]
     Indication: TUBERCULOSIS
     Dates: start: 20050412

REACTIONS (11)
  - AGITATION [None]
  - CONVULSION [None]
  - DEHYDRATION [None]
  - DYSPHASIA [None]
  - DYSPNOEA [None]
  - KERATITIS [None]
  - MALNUTRITION [None]
  - PANCYTOPENIA [None]
  - RENAL FAILURE ACUTE [None]
  - STEVENS-JOHNSON SYNDROME [None]
  - THROMBOCYTOPENIA [None]
